FAERS Safety Report 6734631-0 (Version None)
Quarter: 2010Q2

REPORT INFORMATION
  Report Type: 
  Country: None (occurrence: None)
  Receive Date: 20100519
  Receipt Date: 20100507
  Transmission Date: 20101027
  Serious: Yes (Hospitalization, Other)
  Sender: FDA-Public Use
  Company Number: 8039786

PATIENT
  Sex: Female
  Weight: 96.1 kg

DRUGS (10)
  1. CERTOLIZUMAB PEGOL [Suspect]
     Indication: CROHN'S DISEASE
     Dosage: 400 MG 1X 2 WEEKS SUBCUTANEOUS
     Route: 058
     Dates: start: 20081030, end: 20081226
  2. REMICADE [Suspect]
     Dates: start: 20090801
  3. NORVASC [Concomitant]
  4. PLAVIX [Concomitant]
  5. PRINZIDE [Concomitant]
  6. MULTI-VITAMIN [Concomitant]
  7. ALLEGRA D 24 HOUR [Concomitant]
  8. PREVACID [Concomitant]
  9. MELOXICAM [Concomitant]
  10. LISINOPRIL [Concomitant]

REACTIONS (18)
  - ARTHRALGIA [None]
  - BACK PAIN [None]
  - BALANCE DISORDER [None]
  - CONDITION AGGRAVATED [None]
  - CROHN'S DISEASE [None]
  - DEVICE OCCLUSION [None]
  - DRUG INEFFECTIVE [None]
  - FALL [None]
  - FATIGUE [None]
  - GASTROINTESTINAL HAEMORRHAGE [None]
  - GENERALISED OEDEMA [None]
  - HYPOAESTHESIA [None]
  - INJECTION SITE ERYTHEMA [None]
  - INJECTION SITE PRURITUS [None]
  - MULTIPLE SCLEROSIS RELAPSE [None]
  - MYALGIA [None]
  - MYOCARDIAL INFARCTION [None]
  - PNEUMONIA [None]
